FAERS Safety Report 5484136-2 (Version None)
Quarter: 2007Q4

REPORT INFORMATION
  Report Type: 
  Country: None (occurrence: None)
  Receive Date: 20071012
  Receipt Date: 20071001
  Transmission Date: 20080405
  Serious: Yes (Hospitalization, Other)
  Sender: FDA-Public Use
  Company Number: FR-BRISTOL-MYERS SQUIBB COMPANY-13931688

PATIENT
  Age: 73 Year
  Sex: Female

DRUGS (9)
  1. GLUCOPHAGE [Suspect]
     Indication: TYPE 2 DIABETES MELLITUS
     Route: 048
     Dates: end: 20070913
  2. CRESTOR [Suspect]
     Indication: HYPERCHOLESTEROLAEMIA
     Route: 048
     Dates: start: 20061101, end: 20070914
  3. GLYBURIDE [Suspect]
     Indication: TYPE 2 DIABETES MELLITUS
     Route: 048
     Dates: end: 20070913
  4. ACARBOSE [Suspect]
     Indication: TYPE 2 DIABETES MELLITUS
     Dosage: 100 MG TABLET
     Route: 048
     Dates: end: 20070913
  5. AMLOR [Suspect]
     Dosage: 5 MG TABLET
     Route: 048
     Dates: start: 20040101, end: 20070913
  6. SECTRAL [Concomitant]
     Dosage: 200 MG TABLET
     Route: 048
  7. LEXOMIL [Concomitant]
     Dosage: 6 MG TABLET
     Route: 048
  8. IMOVANE [Concomitant]
     Dosage: 2 DOSAGE FORM PER DAY
  9. KARDEGIC [Concomitant]
     Dosage: 160 MG TABLET
     Route: 048

REACTIONS (5)
  - CYTOLYTIC HEPATITIS [None]
  - DEHYDRATION [None]
  - DIABETES MELLITUS [None]
  - DRUG INEFFECTIVE [None]
  - RENAL FAILURE [None]
